FAERS Safety Report 10024044 (Version 2)
Quarter: 2014Q1

REPORT INFORMATION
  Report Type: Spontaneous
  Country: US (occurrence: US)
  Receive Date: 20140320
  Receipt Date: 20140320
  Transmission Date: 20141002
  Serious: No
  Sender: FDA-Public Use
  Company Number: US-MYLANLABS-2014S1004507

PATIENT
  Age: 66 Year
  Sex: Male
  Weight: 39.01 kg

DRUGS (4)
  1. ATORVASTATIN CALCIUM TABLETS [Suspect]
     Indication: BLOOD CHOLESTEROL INCREASED
     Route: 048
     Dates: start: 201402, end: 20140225
  2. ASPIRIN [Concomitant]
     Indication: PROPHYLAXIS
  3. METOPROLOL SUCCINATE EXTENDED-RELEASE TABLETS USP [Concomitant]
     Indication: MYOCARDIAL INFARCTION
  4. RAMIPRIL [Concomitant]

REACTIONS (3)
  - Dizziness [Recovered/Resolved]
  - Nausea [Recovered/Resolved]
  - Myalgia [Recovered/Resolved]
